FAERS Safety Report 8845893 (Version 1)
Quarter: 2012Q4

REPORT INFORMATION
  Report Type: 
  Country: US (occurrence: US)
  Receive Date: 20121017
  Receipt Date: 20121017
  Transmission Date: 20130627
  Serious: No
  Sender: FDA-Public Use
  Company Number: US-009507513-1210USA001808

PATIENT
  Sex: Male

DRUGS (3)
  1. JANUVIA [Suspect]
     Dosage: UNK
     Route: 048
     Dates: end: 20120916
  2. METFORMIN [Concomitant]
  3. GLYBURIDE [Concomitant]

REACTIONS (3)
  - Vision blurred [Recovered/Resolved]
  - Eye irritation [Recovered/Resolved]
  - Colour blindness acquired [Recovered/Resolved]
